FAERS Safety Report 13353417 (Version 2)
Quarter: 2017Q2

REPORT INFORMATION
  Report Type: Spontaneous
  Country: IL (occurrence: IL)
  Receive Date: 20170321
  Receipt Date: 20170407
  Transmission Date: 20170830
  Serious: Yes (Other)
  Sender: FDA-Public Use
  Company Number: IL-SHIRE-IL201705909

PATIENT
  Age: 0 Year
  Sex: Female

DRUGS (7)
  1. LEVEMIR [Concomitant]
     Active Substance: INSULIN DETEMIR
     Indication: EXPOSURE DURING BREAST FEEDING
  2. NOVORAPID [Concomitant]
     Active Substance: INSULIN ASPART
     Indication: FOETAL EXPOSURE DURING PREGNANCY
     Dosage: UNK, UNKNOWN
     Route: 050
     Dates: start: 2017
  3. VPRIV [Suspect]
     Active Substance: VELAGLUCERASE ALFA
     Indication: FOETAL EXPOSURE DURING PREGNANCY
     Dosage: UNK, UNKNOWN
     Route: 064
     Dates: end: 20170305
  4. LEVEMIR [Concomitant]
     Active Substance: INSULIN DETEMIR
     Indication: FOETAL EXPOSURE DURING PREGNANCY
     Dosage: 6 IU, UNKNOWN
     Route: 050
     Dates: start: 2017
  5. VPRIV [Suspect]
     Active Substance: VELAGLUCERASE ALFA
     Indication: EXPOSURE DURING BREAST FEEDING
     Dosage: UNK, UNKNOWN
     Route: 063
     Dates: start: 20170305
  6. NOVORAPID [Concomitant]
     Active Substance: INSULIN ASPART
     Indication: EXPOSURE DURING BREAST FEEDING
  7. IRON [Concomitant]
     Active Substance: IRON
     Indication: EXPOSURE DURING BREAST FEEDING
     Dosage: UNK, UNKNOWN
     Route: 050
     Dates: start: 2017

REACTIONS (3)
  - Supraventricular tachycardia [Unknown]
  - Exposure during breast feeding [Not Recovered/Not Resolved]
  - Tachycardia [Unknown]

NARRATIVE: CASE EVENT DATE: 201703
